FAERS Safety Report 15172355 (Version 1)
Quarter: 2018Q3

REPORT INFORMATION
  Report Type: Spontaneous
  Country: GB (occurrence: GB)
  Receive Date: 20180720
  Receipt Date: 20180720
  Transmission Date: 20181010
  Serious: Yes (Other)
  Sender: FDA-Public Use
  Company Number: GB-PFIZER INC-2018242872

PATIENT
  Sex: Male

DRUGS (3)
  1. CEFTRIAXONE SODIUM. [Suspect]
     Active Substance: CEFTRIAXONE SODIUM
     Indication: GONORRHOEA
     Dosage: 1 G, UNK
  2. AZITHROMYCIN ANHYDROUS. [Suspect]
     Active Substance: AZITHROMYCIN ANHYDROUS
     Indication: GONORRHOEA
     Dosage: UNK
  3. SPECTINOMYCIN. [Suspect]
     Active Substance: SPECTINOMYCIN
     Indication: GONORRHOEA
     Dosage: UNK

REACTIONS (2)
  - Pathogen resistance [Recovering/Resolving]
  - Drug ineffective [Unknown]
